FAERS Safety Report 7156970-4 (Version None)
Quarter: 2010Q4

REPORT INFORMATION
  Report Type: 
  Country: None (occurrence: None)
  Receive Date: 20101214
  Receipt Date: 20100112
  Transmission Date: 20110411
  Serious: No
  Sender: FDA-Public Use
  Company Number: US-ASTRAZENECA-2010SE01429

PATIENT
  Age: 89 Year
  Sex: Female
  Weight: 49.9 kg

DRUGS (1)
  1. CRESTOR [Suspect]
     Indication: BLOOD CHOLESTEROL INCREASED
     Route: 048
     Dates: start: 20091201

REACTIONS (4)
  - BONE PAIN [None]
  - MUSCLE SPASMS [None]
  - PYREXIA [None]
  - WEIGHT DECREASED [None]
